FAERS Safety Report 4588270-0 (Version None)
Quarter: 2005Q1

REPORT INFORMATION
  Report Type: 
  Country: None (occurrence: None)
  Receive Date: 20050216
  Receipt Date: 20050202
  Transmission Date: 20050727
  Serious: No
  Sender: FDA-Public Use
  Company Number: 2005GB00223

PATIENT
  Age: 51 Year
  Sex: Female

DRUGS (1)
  1. ATENOLOL [Suspect]
     Indication: HEADACHE
     Dosage: 25 MG QD PO
     Route: 048
     Dates: start: 20050107, end: 20050110

REACTIONS (1)
  - MENORRHAGIA [None]
